FAERS Safety Report 20540176 (Version 2)
Quarter: 2022Q1

REPORT INFORMATION
  Report Type: Spontaneous
  Country: TH (occurrence: TH)
  Receive Date: 20220302
  Receipt Date: 20220310
  Transmission Date: 20220423
  Serious: Yes (Death, Other)
  Sender: FDA-Public Use
  Company Number: TH-PFIZER INC-202200342067

PATIENT
  Age: 12 Month
  Sex: Male
  Weight: 5.5 kg

DRUGS (2)
  1. FLUCONAZOLE [Suspect]
     Active Substance: FLUCONAZOLE
     Indication: Penicillium infection
     Dosage: 5 MG/KG, DAILY
     Route: 048
  2. AMPHOTERICIN B [Suspect]
     Active Substance: AMPHOTERICIN B
     Indication: Penicillium infection
     Dosage: UNK

REACTIONS (1)
  - Drug ineffective [Fatal]
